FAERS Safety Report 4556448-8 (Version None)
Quarter: 2005Q1

REPORT INFORMATION
  Report Type: 
  Country: None (occurrence: None)
  Receive Date: 20050114
  Receipt Date: 20050105
  Transmission Date: 20050727
  Serious: Yes (Hospitalization, Other)
  Sender: FDA-Public Use
  Company Number: 2005-00047

PATIENT
  Age: 46 Year
  Sex: Male

DRUGS (2)
  1. MEXILETINE (WATSON LABORATORIES) (MEXILETINE HYDROCHLORIDE) CAPSULE, 1 [Suspect]
     Indication: DIABETIC NEUROPATHY
     Dosage: 300 MG, DAILY, ORAL
     Route: 048
     Dates: start: 20020101, end: 20020201
  2. GLICLAZIDE (GLICLAZIDE) [Concomitant]

REACTIONS (2)
  - DIABETES MELLITUS INSULIN-DEPENDENT [None]
  - DRUG HYPERSENSITIVITY [None]
